FAERS Safety Report 23882385 (Version 1)
Quarter: 2024Q2

REPORT INFORMATION
  Report Type: Spontaneous
  Country: US (occurrence: US)
  Receive Date: 20240522
  Receipt Date: 20240522
  Transmission Date: 20240716
  Serious: Yes (Other)
  Sender: FDA-Public Use
  Company Number: US-HALEON-2174597

PATIENT
  Sex: Female

DRUGS (1)
  1. CITRUCEL [Suspect]
     Active Substance: METHYLCELLULOSE (4000 CPS)\METHYLCELLULOSE (4000 MPA.S)
     Indication: Product used for unknown indication

REACTIONS (1)
  - Drug dependence [Unknown]
